FAERS Safety Report 5731294-8 (Version None)
Quarter: 2008Q2

REPORT INFORMATION
  Report Type: 
  Country: None (occurrence: None)
  Receive Date: 20080505
  Receipt Date: 20080423
  Transmission Date: 20081010
  Serious: Yes (Hospitalization)
  Sender: FDA-Public Use
  Company Number: 107#08#2008-02353

PATIENT
  Age: 10 Year
  Sex: Female

DRUGS (1)
  1. IBUPROFEN [Suspect]
     Indication: PYREXIA
     Dosage: MAXIMUM OF 30 MG/KG

REACTIONS (7)
  - CHOLESTASIS [None]
  - CONJUNCTIVITIS [None]
  - DISEASE RECURRENCE [None]
  - HEPATITIS [None]
  - PYREXIA [None]
  - STEVENS-JOHNSON SYNDROME [None]
  - VANISHING BILE DUCT SYNDROME [None]
